FAERS Safety Report 7343427-0 (Version None)
Quarter: 2011Q1

REPORT INFORMATION
  Report Type: 
  Country: None (occurrence: None)
  Receive Date: 20110310
  Receipt Date: 20110309
  Transmission Date: 20110831
  Serious: Yes (Other)
  Sender: FDA-Public Use
  Company Number: US-BAYER-2011-021523

PATIENT
  Sex: Female

DRUGS (2)
  1. YASMIN [Suspect]
     Dosage: UNK
     Dates: start: 20060201, end: 20070801
  2. YAZ [Suspect]
     Dosage: UNK
     Dates: start: 20060201, end: 20070801

REACTIONS (1)
  - GALLBLADDER DISORDER [None]
